FAERS Safety Report 8689358 (Version 2)
Quarter: 2012Q4

REPORT INFORMATION
  Report Type: 
  Country: US (occurrence: US)
  Receive Date: 20120727
  Receipt Date: 20121105
  Transmission Date: 20130627
  Serious: Yes (Other)
  Sender: FDA-Public Use
  Company Number: US-ASTRAZENECA-2012SE00943

PATIENT
  Age: 60 Year
  Sex: Male

DRUGS (3)
  1. SEROQUEL [Suspect]
     Indication: DEPRESSION
     Route: 048
  2. SHOT FOR THE CANCER [Suspect]
     Route: 065
  3. XANAX [Concomitant]

REACTIONS (9)
  - Recurrent cancer [Unknown]
  - Depression [Unknown]
  - Insomnia [Unknown]
  - Anxiety [Unknown]
  - Psychotic disorder [Unknown]
  - Weight increased [Unknown]
  - Restlessness [Unknown]
  - Intentional drug misuse [Unknown]
  - Drug dose omission [Unknown]
